FAERS Safety Report 10044986 (Version 1)
Quarter: 2014Q1

REPORT INFORMATION
  Report Type: Spontaneous
  Country: GB (occurrence: GB)
  Receive Date: 20140328
  Receipt Date: 20140328
  Transmission Date: 20141002
  Serious: Yes (Life-Threatening, Hospitalization)
  Sender: FDA-Public Use
  Company Number: GB-BAYER-2014-042482

PATIENT
  Age: 78 Year
  Sex: Male

DRUGS (12)
  1. ACETYLSALICYLIC ACID (} 100 MG) [Suspect]
     Dosage: UNK
     Route: 048
     Dates: start: 20001205
  2. CARBOPLATIN [Suspect]
     Dosage: UNK
     Dates: start: 20090212, end: 2009
  3. CARBOPLATIN [Suspect]
     Dosage: 540 MG, UNK
     Dates: start: 20090512, end: 200905
  4. CARBOPLATIN [Suspect]
     Dosage: 540 MG, UNK
     Dates: start: 20090519, end: 2009
  5. CARBOPLATIN [Suspect]
     Dosage: UNK
     Dates: start: 2009
  6. DALTEPARIN SODIUM [Suspect]
     Indication: LUNG NEOPLASM MALIGNANT
     Dosage: 5000 IU, QD
     Route: 058
     Dates: start: 20090310
  7. GEMCITABINE [Suspect]
     Dosage: UNK
     Dates: start: 20090212, end: 2009
  8. GEMCITABINE [Suspect]
     Dosage: 2394 MG, UNK
     Dates: start: 20090512, end: 200905
  9. GEMCITABINE [Suspect]
     Dosage: 2394 MG, UNK
     Dates: start: 20090519, end: 2009
  10. GEMCITABINE [Suspect]
     Dosage: UNK
     Dates: start: 2009
  11. SIMVASTATIN [Concomitant]
     Dosage: 70 MG, UNK
  12. SOTALOL [Concomitant]
     Dosage: 80 MG, UNK
     Dates: start: 20000224

REACTIONS (4)
  - White blood cell count decreased [Recovered/Resolved]
  - Neutrophil count decreased [Recovered/Resolved]
  - Epistaxis [Recovered/Resolved]
  - Platelet count decreased [Recovered/Resolved]
